FAERS Safety Report 7273807-3 (Version None)
Quarter: 2011Q1

REPORT INFORMATION
  Report Type: 
  Country: None (occurrence: None)
  Receive Date: 20110203
  Receipt Date: 20101119
  Transmission Date: 20110831
  Serious: Yes (Death, Hospitalization)
  Sender: FDA-Public Use
  Company Number: CO-PFIZER INC-2010087945

PATIENT
  Age: 86 Year
  Sex: Male

DRUGS (1)
  1. DETRUSITOL [Suspect]
     Indication: POLLAKIURIA
     Dosage: 1 TABLET, 1X/DAY
     Route: 048
     Dates: start: 20091101

REACTIONS (4)
  - DEATH [None]
  - RECTAL HAEMORRHAGE [None]
  - DIARRHOEA [None]
  - HAEMORRHAGE [None]
